FAERS Safety Report 25008308 (Version 1)
Quarter: 2025Q1

REPORT INFORMATION
  Report Type: Spontaneous
  Country: US (occurrence: US)
  Receive Date: 20250225
  Receipt Date: 20250225
  Transmission Date: 20250409
  Serious: No
  Sender: XELLIA PHARMACEUTICALS
  Company Number: US-Axellia-005086

PATIENT
  Sex: Female

DRUGS (28)
  1. VANCOMYCIN [Suspect]
     Active Substance: VANCOMYCIN
     Indication: Product used for unknown indication
  2. ALPRAZOLAM [Concomitant]
     Active Substance: ALPRAZOLAM
  3. APIXABAN [Concomitant]
     Active Substance: APIXABAN
  4. BIOTIN [Concomitant]
     Active Substance: BIOTIN
  5. CAPECITABINE [Concomitant]
     Active Substance: CAPECITABINE
  6. CHOLECALCIFEROL [Concomitant]
     Active Substance: CHOLECALCIFEROL
  7. CYANOCOBALAMIN [Concomitant]
     Active Substance: CYANOCOBALAMIN
  8. CYCLOBENZAPRINE [Concomitant]
     Active Substance: CYCLOBENZAPRINE
  9. DEXLANSOPRAZOLE [Concomitant]
     Active Substance: DEXLANSOPRAZOLE
  10. DICYCLOMINE [Concomitant]
     Active Substance: DICYCLOMINE HYDROCHLORIDE
  11. ENALAPRIL [Concomitant]
     Active Substance: ENALAPRIL
  12. ENOXAPARIN [Concomitant]
     Active Substance: ENOXAPARIN
  13. FLUTICASONE [Concomitant]
     Active Substance: FLUTICASONE
  14. HYDROCHLOROTHIAZIDE [Concomitant]
     Active Substance: HYDROCHLOROTHIAZIDE
  15. LINACLOTIDE [Concomitant]
     Active Substance: LINACLOTIDE
  16. MAGNESIUM OXIDE [Concomitant]
     Active Substance: MAGNESIUM OXIDE
  17. POLYETHYLENE GLYCOL [Concomitant]
     Active Substance: POLYETHYLENE GLYCOL
  18. PROCHLORPERAZINE [Concomitant]
     Active Substance: PROCHLORPERAZINE
  19. ROLAPITANT [Concomitant]
     Active Substance: ROLAPITANT
  20. SEMAGLUTIDE [Concomitant]
     Active Substance: SEMAGLUTIDE
  21. SUCRALFATE [Concomitant]
     Active Substance: SUCRALFATE
  22. TEMAZEPAM [Concomitant]
     Active Substance: TEMAZEPAM
  23. TIZANIDINE [Concomitant]
     Active Substance: TIZANIDINE
  24. TUCATINIB [Concomitant]
     Active Substance: TUCATINIB
  25. HYDROXYZINE [Concomitant]
     Active Substance: HYDROXYZINE HYDROCHLORIDE
  26. LOPERAMIDE [Concomitant]
     Active Substance: LOPERAMIDE
  27. PROCHLORPERAZINE [Concomitant]
     Active Substance: PROCHLORPERAZINE
  28. PROMETHAZINE [Concomitant]
     Active Substance: PROMETHAZINE HYDROCHLORIDE

REACTIONS (2)
  - Urticaria [Unknown]
  - Blister [Unknown]
